FAERS Safety Report 15197207 (Version 2)
Quarter: 2019Q2

REPORT INFORMATION
  Report Type: Report from Study
  Country: US (occurrence: US)
  Receive Date: 20180725
  Receipt Date: 20190509
  Transmission Date: 20190711
  Serious: Yes (Hospitalization)
  Sender: FDA-Public Use
  Company Number: US-ACTELION-A-US2018-170812

PATIENT
  Sex: Male

DRUGS (2)
  1. OPSUMIT [Suspect]
     Active Substance: MACITENTAN
     Indication: PULMONARY ARTERIAL HYPERTENSION
     Dosage: 10 MG, QD
     Route: 048
     Dates: start: 20180205
  2. BUMEX [Concomitant]
     Active Substance: BUMETANIDE
     Dosage: UNK, BID

REACTIONS (20)
  - Confusional state [Unknown]
  - Chest discomfort [Unknown]
  - International normalised ratio increased [Unknown]
  - Vomiting [Unknown]
  - Pulmonary oedema [Unknown]
  - Cardiac failure [Unknown]
  - Dyspnoea [Unknown]
  - Pulmonary arterial hypertension [Not Recovered/Not Resolved]
  - Chest pain [Unknown]
  - Transfusion [Unknown]
  - Melaena [Unknown]
  - Dizziness [Unknown]
  - Gastrointestinal haemorrhage [Unknown]
  - Therapy non-responder [Unknown]
  - Fluid retention [Unknown]
  - Renal impairment [Unknown]
  - Ischaemia [Unknown]
  - Anaemia [Unknown]
  - Hospitalisation [Unknown]
  - Haematochezia [Unknown]
